FAERS Safety Report 20316534 (Version 1)
Quarter: 2022Q1

REPORT INFORMATION
  Report Type: Report from Study
  Country: ES (occurrence: ES)
  Receive Date: 20220110
  Receipt Date: 20220110
  Transmission Date: 20220423
  Serious: Yes (Hospitalization, Other)
  Sender: FDA-Public Use
  Company Number: ES-VERTEX PHARMACEUTICALS-2020-012149

PATIENT
  Age: 39 Year
  Sex: Male

DRUGS (8)
  1. PIPERACILLIN SODIUM\TAZOBACTAM SODIUM [Suspect]
     Active Substance: PIPERACILLIN SODIUM\TAZOBACTAM SODIUM
     Indication: Respiratory tract infection
     Dosage: 4 GRAM, EVERY 8 HRS
     Route: 065
     Dates: start: 20200507, end: 20200526
  2. ELEXACAFTOR\IVACAFTOR\TEZACAFTOR [Suspect]
     Active Substance: ELEXACAFTOR\IVACAFTOR\TEZACAFTOR
     Indication: Product used for unknown indication
     Dosage: 2 TABLETS WITH BREAKFAST
     Route: 048
     Dates: start: 20200519, end: 20200526
  3. ELEXACAFTOR\IVACAFTOR\TEZACAFTOR [Suspect]
     Active Substance: ELEXACAFTOR\IVACAFTOR\TEZACAFTOR
     Indication: Cystic fibrosis
     Dosage: UNK
     Route: 048
     Dates: start: 20200518, end: 20200518
  4. METAMIZOLE\PROPOXYPHENE [Suspect]
     Active Substance: METAMIZOLE\PROPOXYPHENE
     Indication: Abdominal pain
     Dosage: UNK
  5. METAMIZOLE\PROPOXYPHENE [Suspect]
     Active Substance: METAMIZOLE\PROPOXYPHENE
     Indication: Pyrexia
     Dosage: UNK
  6. METAMIZOLE\PROPOXYPHENE [Suspect]
     Active Substance: METAMIZOLE\PROPOXYPHENE
     Indication: Gastrointestinal disorder
     Dosage: 2 GRAM
     Route: 048
     Dates: start: 20200526, end: 20200527
  7. KALYDECO [Suspect]
     Active Substance: IVACAFTOR
     Indication: Product used for unknown indication
     Dosage: 1 TABLET WITH DINNER
     Route: 048
     Dates: start: 20200519, end: 20200526
  8. KALYDECO [Suspect]
     Active Substance: IVACAFTOR
     Indication: Cystic fibrosis
     Dosage: HALF DOSE
     Route: 048
     Dates: start: 20200518, end: 20200518

REACTIONS (9)
  - Hyperbilirubinaemia [Recovered/Resolved]
  - Toxic epidermal necrolysis [Recovered/Resolved]
  - Thrombocytopenia [Recovered/Resolved]
  - Acute respiratory failure [Recovered/Resolved]
  - Neutropenia [Recovered/Resolved]
  - Lymphopenia [Recovered/Resolved]
  - Hypotension [Recovered/Resolved]
  - Pneumonia [Recovered/Resolved]
  - Generalised oedema [Recovered/Resolved]

NARRATIVE: CASE EVENT DATE: 20200101
